FAERS Safety Report 6309890-9 (Version None)
Quarter: 2009Q3

REPORT INFORMATION
  Report Type: 
  Country: None (occurrence: None)
  Receive Date: 20090814
  Receipt Date: 20090805
  Transmission Date: 20100115
  Serious: Yes (Death, Hospitalization)
  Sender: FDA-Public Use
  Company Number: A0709945A

PATIENT
  Age: 54 Year
  Sex: Male
  Weight: 84.1 kg

DRUGS (10)
  1. AVANDIA [Suspect]
     Dosage: 4MG PER DAY
     Route: 048
     Dates: start: 20050101, end: 20080101
  2. AVANDAMET [Suspect]
     Route: 048
     Dates: start: 20040101, end: 20080101
  3. STARLIX [Concomitant]
  4. LIPITOR [Concomitant]
  5. ARANESP [Concomitant]
  6. LABETALOL HCL [Concomitant]
  7. AMLODIPINE [Concomitant]
  8. CLONIDINE [Concomitant]
  9. HYDRALAZINE HCL [Concomitant]
  10. LEVITRA [Concomitant]
     Dates: start: 20080227

REACTIONS (4)
  - CARDIAC FAILURE CONGESTIVE [None]
  - CARDIOMYOPATHY [None]
  - DEATH [None]
  - MYOCARDIAL INFARCTION [None]
